FAERS Safety Report 9955726 (Version 1)
Quarter: 2014Q1

REPORT INFORMATION
  Report Type: Spontaneous
  Country: GB (occurrence: GB)
  Receive Date: 20140304
  Receipt Date: 20140304
  Transmission Date: 20141002
  Serious: Yes (Hospitalization, Other)
  Sender: FDA-Public Use
  Company Number: GB-ABBVIE-14P-167-1208656-00

PATIENT
  Age: 50 Year
  Sex: Female

DRUGS (4)
  1. EPILIM [Suspect]
     Indication: BIPOLAR I DISORDER
     Route: 048
     Dates: start: 20131223, end: 20131231
  2. MORPHINE [Concomitant]
     Indication: PRODUCT USED FOR UNKNOWN INDICATION
  3. QUETIAPINE FUMARATE [Concomitant]
     Indication: PRODUCT USED FOR UNKNOWN INDICATION
  4. CODEINE [Concomitant]
     Indication: PRODUCT USED FOR UNKNOWN INDICATION

REACTIONS (3)
  - Pain [Recovered/Resolved]
  - Abdominal pain upper [Recovered/Resolved]
  - Sedation [Unknown]
